FAERS Safety Report 9133527 (Version 1)
Quarter: 2013Q1

REPORT INFORMATION
  Report Type: Spontaneous
  Country: US (occurrence: US)
  Receive Date: 20130124
  Receipt Date: 20130124
  Transmission Date: 20140127
  Serious: Yes (Hospitalization)
  Sender: FDA-Public Use
  Company Number: US-BRACCO-008566

PATIENT
  Age: 57 Year
  Sex: Female

DRUGS (9)
  1. GEMFIBROZIL [Concomitant]
  2. MULTIHANCE [Suspect]
     Indication: NUCLEAR MAGNETIC RESONANCE IMAGING BREAST
     Route: 042
     Dates: start: 20120911, end: 20120911
  3. MULTIHANCE [Suspect]
     Indication: BREAST MASS
     Route: 042
     Dates: start: 20120911, end: 20120911
  4. PANTOPRAZOLE SODIUM [Concomitant]
  5. HYDROCHLOROTHIAZIDE [Concomitant]
  6. PRIMAXIN [Concomitant]
  7. TRAMADOL [Concomitant]
  8. LISINOPRIL [Concomitant]
  9. METOPROLOL [Concomitant]

REACTIONS (4)
  - Convulsion [Recovered/Resolved]
  - Dyspnoea [Recovering/Resolving]
  - Depressed level of consciousness [Recovering/Resolving]
  - Hyperhidrosis [Recovered/Resolved]
